FAERS Safety Report 11463585 (Version 1)
Quarter: 2015Q3

REPORT INFORMATION
  Report Type: Spontaneous
  Country: US (occurrence: US)
  Receive Date: 20150831
  Receipt Date: 20150831
  Transmission Date: 20151125
  Serious: No
  Sender: FDA-Public Use
  Company Number: US-ELI_LILLY_AND_COMPANY-US201104000095

PATIENT
  Age: 71 Year
  Sex: Male

DRUGS (6)
  1. CYMBALTA [Suspect]
     Active Substance: DULOXETINE HYDROCHLORIDE
     Indication: DEPRESSION
     Dosage: 30 MG, QD
     Dates: start: 20110127, end: 20110301
  2. CYMBALTA [Suspect]
     Active Substance: DULOXETINE HYDROCHLORIDE
     Dosage: 30 MG, EACH EVENING
     Dates: start: 20110321
  3. ANALGESICS [Concomitant]
     Active Substance: UNSPECIFIED INGREDIENT
     Dosage: UNK, UNKNOWN
  4. CYMBALTA [Suspect]
     Active Substance: DULOXETINE HYDROCHLORIDE
     Dosage: 60 MG, QD
     Dates: start: 20110301
  5. ANESTHETICS [Concomitant]
     Active Substance: UNSPECIFIED INGREDIENT
     Dosage: UNK, UNKNOWN
  6. CORTICOSTEROIDS [Concomitant]
     Active Substance: CORTICOSTEROID NOS
     Dosage: UNK, UNKNOWN

REACTIONS (11)
  - Blood glucose increased [Not Recovered/Not Resolved]
  - Rash [Unknown]
  - Irritability [Unknown]
  - Urticaria [Recovered/Resolved]
  - Pain management [Unknown]
  - Drug effect decreased [Not Recovered/Not Resolved]
  - Dawn phenomenon [Not Recovered/Not Resolved]
  - Drug withdrawal syndrome [Unknown]
  - Epidural analgesia [Unknown]
  - Nerve block [Unknown]
  - Lip swelling [Unknown]

NARRATIVE: CASE EVENT DATE: 201103
